FAERS Safety Report 9944539 (Version 1)
Quarter: 2014Q1

REPORT INFORMATION
  Report Type: Report from Study
  Country: US (occurrence: US)
  Receive Date: 20140303
  Receipt Date: 20140303
  Transmission Date: 20141002
  Serious: No
  Sender: FDA-Public Use
  Company Number: US-ABBVIE-13P-163-1054966-00

PATIENT
  Age: 49 Year
  Sex: Female

DRUGS (14)
  1. HUMIRA [Suspect]
     Indication: CROHN^S DISEASE
     Dates: start: 20130123, end: 20130123
  2. HUMIRA [Suspect]
     Dates: start: 20130207, end: 20130207
  3. HUMIRA [Suspect]
     Dosage: SHOULD HAVE BEEN 40
     Dates: start: 20130217, end: 20130217
  4. HUMIRA [Suspect]
  5. NORTRIPTYLINE [Concomitant]
     Indication: CROHN^S DISEASE
     Dosage: AT BEDTIME
  6. VITAMIN D [Concomitant]
     Indication: NUTRITIONAL SUPPLEMENTATION
     Dosage: 2000 IU DAILY
  7. OXYCONTIN [Concomitant]
     Indication: PAIN
  8. OXYCONTIN [Concomitant]
     Indication: CROHN^S DISEASE
  9. DILAUDID [Concomitant]
     Indication: PAIN
  10. DILAUDID [Concomitant]
     Indication: CROHN^S DISEASE
  11. POTASSIUM CHLORIDE [Concomitant]
     Indication: PRODUCT USED FOR UNKNOWN INDICATION
     Dosage: 40MEQ DAILY
  12. PROMETHAZINE [Concomitant]
     Indication: NAUSEA
  13. FERROUS SULFATE [Concomitant]
     Indication: ANAEMIA
     Dosage: DAILY
  14. IMURAN [Concomitant]
     Indication: PRODUCT USED FOR UNKNOWN INDICATION
     Dosage: 50MG DAILY

REACTIONS (3)
  - Inappropriate schedule of drug administration [Not Recovered/Not Resolved]
  - Incorrect dose administered [Not Recovered/Not Resolved]
  - Nasopharyngitis [Not Recovered/Not Resolved]
